FAERS Safety Report 8546755-6 (Version None)
Quarter: 2012Q3

REPORT INFORMATION
  Report Type: 
  Country: None (occurrence: None)
  Receive Date: 20120727
  Receipt Date: 20120207
  Transmission Date: 20120928
  Serious: No
  Sender: FDA-Public Use
  Company Number: US-ASTRAZENECA-2012SE08607

PATIENT
  Age: 36 Year
  Sex: Male
  Weight: 99.8 kg

DRUGS (2)
  1. LAMICTAL [Concomitant]
  2. SEROQUEL [Suspect]
     Indication: BIPOLAR DISORDER
     Route: 048
     Dates: start: 20060101

REACTIONS (3)
  - INSOMNIA [None]
  - DRUG DOSE OMISSION [None]
  - IRRITABILITY [None]
